FAERS Safety Report 15552136 (Version 7)
Quarter: 2019Q4

REPORT INFORMATION
  Report Type: Spontaneous
  Country: US (occurrence: US)
  Receive Date: 20181025
  Receipt Date: 20191008
  Transmission Date: 20200122
  Serious: Yes (Other)
  Sender: FDA-Public Use
  Company Number: US-PFIZER INC-2017258433

PATIENT
  Age: 81 Year
  Sex: Female
  Weight: 87.54 kg

DRUGS (2)
  1. TIKOSYN [Suspect]
     Active Substance: DOFETILIDE
     Indication: ATRIAL FIBRILLATION
     Dosage: 250 UG, TWICE A DAY
     Route: 048
     Dates: start: 20170502
  2. TIKOSYN [Suspect]
     Active Substance: DOFETILIDE
     Dosage: 250 UG, ONCE A DAY (TAKING ONE INSTEAD OF 2)

REACTIONS (6)
  - Product use in unapproved indication [Unknown]
  - Off label use [Unknown]
  - Back pain [Unknown]
  - Body height decreased [Unknown]
  - Intentional product misuse [Unknown]
  - Arrhythmia [Unknown]
